FAERS Safety Report 12970586 (Version 1)
Quarter: 2016Q4

REPORT INFORMATION
  Report Type: Spontaneous
  Country: IT (occurrence: IT)
  Receive Date: 20161123
  Receipt Date: 20161123
  Transmission Date: 20170207
  Serious: Yes (Other)
  Sender: FDA-Public Use
  Company Number: IT-JNJFOC-20161116924

PATIENT

DRUGS (2)
  1. INFLIXIMAB, RECOMBINANT [Suspect]
     Active Substance: INFLIXIMAB
     Indication: PSORIASIS
     Route: 042
  2. INFLIXIMAB, RECOMBINANT [Suspect]
     Active Substance: INFLIXIMAB
     Indication: PSORIATIC ARTHROPATHY
     Route: 042

REACTIONS (16)
  - Cystitis [Unknown]
  - Tuberculosis [Unknown]
  - Headache [Unknown]
  - Hyperlipidaemia [Unknown]
  - Basal cell carcinoma [Unknown]
  - Calculus bladder [Unknown]
  - Drug ineffective [Unknown]
  - Candida infection [Unknown]
  - Immunoglobulins abnormal [Unknown]
  - Infusion related reaction [Unknown]
  - Hypertension [Unknown]
  - Influenza like illness [Unknown]
  - Herpes zoster [Unknown]
  - Diarrhoea [Unknown]
  - Anal fistula [Unknown]
  - Intervertebral discitis [Unknown]
